FAERS Safety Report 6711157-1 (Version None)
Quarter: 2010Q2

REPORT INFORMATION
  Report Type: 
  Country: None (occurrence: None)
  Receive Date: 20100505
  Receipt Date: 20100423
  Transmission Date: 20101027
  Serious: Yes (Death, Hospitalization)
  Sender: FDA-Public Use
  Company Number: US-JNJFOC-20100406767

PATIENT
  Sex: Male
  Weight: 111.59 kg

DRUGS (6)
  1. REMICADE [Suspect]
     Indication: CROHN'S DISEASE
     Route: 042
  2. REMICADE [Suspect]
     Route: 042
  3. ACETAMINOPHEN [Concomitant]
     Indication: PREMEDICATION
  4. ACETAMINOPHEN [Concomitant]
  5. ANTIHISTAMINE [Concomitant]
     Indication: PREMEDICATION
  6. ANTIHISTAMINE [Concomitant]

REACTIONS (5)
  - MUSCULAR WEAKNESS [None]
  - NEUTROPENIA [None]
  - PNEUMONIA [None]
  - SEPSIS [None]
  - TONGUE NEOPLASM MALIGNANT STAGE UNSPECIFIED [None]
